FAERS Safety Report 7866726-2 (Version None)
Quarter: 2011Q4

REPORT INFORMATION
  Report Type: 
  Country: None (occurrence: None)
  Receive Date: 20111028
  Receipt Date: 20110808
  Transmission Date: 20120403
  Serious: No
  Sender: FDA-Public Use
  Company Number: US-GLAXOSMITHKLINE-A0940086A

PATIENT
  Age: 72 Year
  Sex: Female

DRUGS (11)
  1. AMLODIPINE [Concomitant]
  2. SYNTHROID [Concomitant]
  3. METOPROLOL TARTRATE [Concomitant]
  4. OMEPRAZOLE [Concomitant]
  5. ADVAIR DISKUS 100/50 [Suspect]
     Indication: ASTHMA
     Dosage: 1PUFF TWICE PER DAY
     Route: 055
     Dates: start: 20101201
  6. BONIVA [Concomitant]
  7. URSODIOL [Concomitant]
  8. SINGULAIR [Concomitant]
  9. GLIMEPIRIDE [Concomitant]
  10. QUINAPRIL [Concomitant]
  11. SIMVASTATIN [Concomitant]

REACTIONS (2)
  - DYSPHONIA [None]
  - DRUG INEFFECTIVE [None]
